FAERS Safety Report 17360980 (Version 1)
Quarter: 2020Q1

REPORT INFORMATION
  Report Type: Spontaneous
  Country: US (occurrence: US)
  Receive Date: 20200203
  Receipt Date: 20200203
  Transmission Date: 20200409
  Serious: Yes (Other)
  Sender: FDA-Public Use
  Company Number: US-AKORN PHARMACEUTICALS-2020AKN00053

PATIENT
  Sex: Female
  Weight: 74.83 kg

DRUGS (1)
  1. MYORISAN [Suspect]
     Active Substance: ISOTRETINOIN
     Indication: ACNE
     Dosage: UNK
     Dates: start: 20191028, end: 20191222

REACTIONS (2)
  - Unevaluable event [Recovered/Resolved]
  - Ligament injury [Not Recovered/Not Resolved]

NARRATIVE: CASE EVENT DATE: 2019
